FAERS Safety Report 8203310-5 (Version None)
Quarter: 2012Q1

REPORT INFORMATION
  Report Type: 
  Country: None (occurrence: None)
  Receive Date: 20120312
  Receipt Date: 20120301
  Transmission Date: 20120608
  Serious: Yes (Other)
  Sender: FDA-Public Use
  Company Number: US-BAXTER-2012BH006646

PATIENT
  Age: 61 Year
  Sex: Female

DRUGS (2)
  1. BUMINATE 25% [Suspect]
     Route: 065
     Dates: start: 20101201, end: 20101201
  2. BUMINATE 25% [Suspect]
     Indication: HYPOALBUMINAEMIA
     Route: 065
     Dates: start: 20100601, end: 20100601

REACTIONS (3)
  - RENAL FAILURE [None]
  - SEPSIS [None]
  - WEIGHT DECREASED [None]
